FAERS Safety Report 22318827 (Version 5)
Quarter: 2023Q2

REPORT INFORMATION
  Report Type: Report from Study
  Country: JP (occurrence: JP)
  Receive Date: 20230515
  Receipt Date: 20230613
  Transmission Date: 20230721
  Serious: Yes (Other)
  Sender: FDA-Public Use
  Company Number: JP-002147023-NVSJ2023JP007615

PATIENT
  Age: 19 Year
  Sex: Female
  Weight: 53.4 kg

DRUGS (37)
  1. ILARIS [Suspect]
     Active Substance: CANAKINUMAB
     Indication: Still^s disease
     Dosage: 213 MG
     Route: 058
     Dates: start: 20210324
  2. ILARIS [Suspect]
     Active Substance: CANAKINUMAB
     Dosage: 213 MG
     Route: 058
     Dates: start: 20210421
  3. ILARIS [Suspect]
     Active Substance: CANAKINUMAB
     Dosage: 213 MG
     Route: 058
     Dates: start: 20210512
  4. ILARIS [Suspect]
     Active Substance: CANAKINUMAB
     Dosage: 202.5 MG
     Route: 058
     Dates: start: 20210609
  5. ILARIS [Suspect]
     Active Substance: CANAKINUMAB
     Dosage: 202.5 MG
     Route: 058
     Dates: start: 20210707
  6. ILARIS [Suspect]
     Active Substance: CANAKINUMAB
     Dosage: 202.5 MG
     Route: 058
     Dates: start: 20210807
  7. ILARIS [Suspect]
     Active Substance: CANAKINUMAB
     Dosage: 210 MG
     Route: 058
     Dates: start: 20210908
  8. ILARIS [Suspect]
     Active Substance: CANAKINUMAB
     Dosage: 210 MG
     Route: 058
     Dates: start: 20211008
  9. ILARIS [Suspect]
     Active Substance: CANAKINUMAB
     Dosage: 210 MG
     Route: 058
     Dates: start: 20211106
  10. ILARIS [Suspect]
     Active Substance: CANAKINUMAB
     Dosage: 210 MG
     Route: 058
     Dates: start: 20211210
  11. ILARIS [Suspect]
     Active Substance: CANAKINUMAB
     Dosage: 210 MG
     Route: 058
     Dates: start: 20220107
  12. ILARIS [Suspect]
     Active Substance: CANAKINUMAB
     Dosage: 210 MG
     Route: 058
     Dates: start: 20220205
  13. ILARIS [Suspect]
     Active Substance: CANAKINUMAB
     Dosage: 210 MG
     Route: 058
     Dates: start: 20220305
  14. ILARIS [Suspect]
     Active Substance: CANAKINUMAB
     Dosage: 210 MG
     Route: 058
     Dates: start: 20220402
  15. ILARIS [Suspect]
     Active Substance: CANAKINUMAB
     Dosage: 210 MG
     Route: 058
     Dates: start: 20220502
  16. ILARIS [Suspect]
     Active Substance: CANAKINUMAB
     Dosage: 210 MG
     Route: 058
     Dates: start: 20220608
  17. ILARIS [Suspect]
     Active Substance: CANAKINUMAB
     Dosage: 210 MG
     Route: 058
     Dates: start: 20220706
  18. ILARIS [Suspect]
     Active Substance: CANAKINUMAB
     Dosage: 210 MG
     Route: 058
     Dates: start: 20220730
  19. ILARIS [Suspect]
     Active Substance: CANAKINUMAB
     Dosage: 210 MG
     Route: 058
     Dates: start: 20220907
  20. ILARIS [Suspect]
     Active Substance: CANAKINUMAB
     Dosage: 210 MG
     Route: 058
     Dates: start: 20221005
  21. ILARIS [Suspect]
     Active Substance: CANAKINUMAB
     Dosage: 210 MG
     Route: 058
     Dates: start: 20221109
  22. ILARIS [Suspect]
     Active Substance: CANAKINUMAB
     Dosage: 210 MG
     Route: 058
     Dates: start: 20221216
  23. ILARIS [Suspect]
     Active Substance: CANAKINUMAB
     Dosage: 210 MG
     Route: 058
     Dates: start: 20230118
  24. ILARIS [Suspect]
     Active Substance: CANAKINUMAB
     Dosage: 210 MG
     Route: 058
     Dates: start: 20230217
  25. ILARIS [Suspect]
     Active Substance: CANAKINUMAB
     Dosage: 210 MG
     Route: 058
     Dates: start: 20230318
  26. ILARIS [Suspect]
     Active Substance: CANAKINUMAB
     Dosage: 210 MG
     Route: 058
     Dates: start: 20230419
  27. METHOTREXATE [Concomitant]
     Active Substance: METHOTREXATE
     Indication: Still^s disease
     Dosage: 9 MG
     Route: 048
     Dates: start: 20200905, end: 20220425
  28. NAPROXEN SODIUM [Concomitant]
     Active Substance: NAPROXEN SODIUM
     Indication: Still^s disease
     Dosage: 400 MG
     Route: 048
     Dates: start: 20181019, end: 20211008
  29. NEXIUM [Concomitant]
     Active Substance: ESOMEPRAZOLE MAGNESIUM
     Indication: Product used for unknown indication
     Dosage: 20 MG
     Route: 048
     Dates: start: 20181019, end: 20211106
  30. ACTONEL [Concomitant]
     Active Substance: RISEDRONATE SODIUM
     Indication: Product used for unknown indication
     Dosage: 75 MG
     Route: 048
     Dates: start: 20200704, end: 20220107
  31. LOXOPROFEN SODIUM [Concomitant]
     Active Substance: LOXOPROFEN SODIUM
     Indication: Still^s disease
     Dosage: 100 MG
     Route: 003
     Dates: start: 20201107, end: 20210609
  32. PREDNISOLONE [Concomitant]
     Active Substance: PREDNISOLONE
     Indication: Still^s disease
     Dosage: 4 MG
     Route: 048
     Dates: start: 20210116, end: 20210514
  33. PREDNISOLONE [Concomitant]
     Active Substance: PREDNISOLONE
     Dosage: 2 MG
     Route: 048
     Dates: start: 20210707, end: 20210908
  34. PREDNISOLONE [Concomitant]
     Active Substance: PREDNISOLONE
     Dosage: 1.5 MG
     Route: 048
     Dates: start: 20210909, end: 20211007
  35. PREDNISOLONE [Concomitant]
     Active Substance: PREDNISOLONE
     Dosage: 1 MG
     Route: 048
     Dates: start: 20211008, end: 20211106
  36. PREDNISOLONE [Concomitant]
     Active Substance: PREDNISOLONE
     Dosage: 0.5 MG
     Route: 048
     Dates: start: 20211107, end: 20211213
  37. PREDONINE [Concomitant]
     Active Substance: PREDNISOLONE
     Indication: Still^s disease
     Dosage: 2.5 MG
     Route: 048
     Dates: start: 20210515, end: 20210706

REACTIONS (3)
  - Campylobacter gastroenteritis [Recovered/Resolved]
  - Coronavirus infection [Recovered/Resolved]
  - Eczema [Recovering/Resolving]

NARRATIVE: CASE EVENT DATE: 20220423
